FAERS Safety Report 4314806-0 (Version None)
Quarter: 2004Q1

REPORT INFORMATION
  Report Type: 
  Country: None (occurrence: None)
  Receive Date: 20040310
  Receipt Date: 20040224
  Transmission Date: 20041129
  Serious: Yes (Death, Hospitalization, Other)
  Sender: FDA-Public Use
  Company Number: PHHO2004VE02862

PATIENT
  Age: 25 Year
  Sex: Female

DRUGS (1)
  1. NEORAL [Suspect]
     Indication: RENAL TRANSPLANT
     Dosage: 50 MG / DAY
     Route: 048
     Dates: start: 19971219

REACTIONS (3)
  - CENTRAL NERVOUS SYSTEM ABSCESS [None]
  - HEADACHE [None]
  - HYPERTENSION [None]
